FAERS Safety Report 8974206 (Version 1)
Quarter: 2012Q4

REPORT INFORMATION
  Report Type: Spontaneous
  Country: US (occurrence: None)
  Receive Date: 20121214
  Receipt Date: 20121214
  Transmission Date: 20130627
  Serious: Yes (Other)
  Sender: FDA-Public Use
  Company Number: AUR-APL-2012-05343

PATIENT
  Age: 25 Year
  Sex: Male

DRUGS (8)
  1. LEVETIRACETAM [Suspect]
     Indication: SEIZURES
     Dosage: Unknown
  2. LAMOTRIGINE (LAMOTRIGINE) [Suspect]
     Indication: SEIZURES
     Dosage: Unknown
  3. TOPIRAMATE (TOPIRAMATE) [Suspect]
     Indication: SEIZURES
     Dosage: Unknown
  4. PHENYTOIN [Suspect]
     Indication: SEIZURES
     Dosage: Unknown
  5. FELBAMATE [Suspect]
     Indication: SEIZURES
     Dosage: Unknown
  6. ZONISAMIDE [Suspect]
     Indication: SEIZURES
     Dosage: Unknown
  7. RUFINAMIDE [Suspect]
     Indication: SEIZURES
     Dosage: Unknown
  8. LORAZEPAM (LORAZEPAM) [Suspect]
     Indication: SEIZURES
     Dosage: Unknown

REACTIONS (3)
  - Aggression [None]
  - Convulsion [None]
  - Drug resistance [None]
